FAERS Safety Report 19553653 (Version 4)
Quarter: 2021Q3

REPORT INFORMATION
  Report Type: Report from Study
  Country: CA (occurrence: CA)
  Receive Date: 20210715
  Receipt Date: 20210805
  Transmission Date: 20211014
  Serious: Yes (Other)
  Sender: FDA-Public Use
  Company Number: CA-HLS-202107909

PATIENT
  Age: 34 Year
  Sex: Female

DRUGS (7)
  1. ACIDOPH PROBIOTIC 1B CELL CAP [Concomitant]
     Route: 048
  2. DEPO?PROVERA [Concomitant]
     Active Substance: MEDROXYPROGESTERONE ACETATE
     Dosage: 150 MG/ VIAL, 1 VIAL FOR 84 DAYS
     Route: 065
  3. FERROUS SULFATE. [Concomitant]
     Active Substance: FERROUS SULFATE
     Route: 065
  4. APO?DIVALPROEX [Concomitant]
     Active Substance: DIVALPROEX SODIUM
     Dosage: MORNING
     Route: 065
  5. APO?DIVALPROEX [Concomitant]
     Active Substance: DIVALPROEX SODIUM
     Dosage: AT NGHT
     Route: 065
  6. CLOZARIL [Suspect]
     Active Substance: CLOZAPINE
     Indication: SCHIZOAFFECTIVE DISORDER
     Dosage: 100 MG, 4 TABLETS AT BEDTIME
     Route: 048
  7. APO?ARIPIPRAZOLE [Concomitant]
     Active Substance: ARIPIPRAZOLE
     Dosage: EVERY MORNING
     Route: 065

REACTIONS (1)
  - COVID-19 [Recovered/Resolved]

NARRATIVE: CASE EVENT DATE: 20210704
